FAERS Safety Report 5302243-1 (Version None)
Quarter: 2007Q2

REPORT INFORMATION
  Report Type: 
  Country: None (occurrence: None)
  Receive Date: 20070419
  Receipt Date: 20061005
  Transmission Date: 20071010
  Serious: No
  Sender: FDA-Public Use
  Company Number: US-GLAXOSMITHKLINE-A0621664A

PATIENT
  Age: 38 Year
  Sex: Male

DRUGS (2)
  1. ESKALITH [Suspect]
     Indication: BIPOLAR DISORDER
     Dosage: 300MG PER DAY
     Route: 048
     Dates: start: 20060918
  2. NO CONCURRENT MEDICATION [Concomitant]

REACTIONS (2)
  - PRURITUS [None]
  - URTICARIA [None]
